FAERS Safety Report 6804569-9 (Version None)
Quarter: 2010Q2

REPORT INFORMATION
  Report Type: 
  Country: None (occurrence: None)
  Receive Date: 20100628
  Receipt Date: 20070605
  Transmission Date: 20101027
  Serious: No
  Sender: FDA-Public Use
  Company Number: US-PFIZER INC-2007028679

PATIENT
  Sex: Female

DRUGS (1)
  1. GEODON [Suspect]
     Dates: start: 20070210, end: 20070226

REACTIONS (9)
  - AGITATION [None]
  - CRYING [None]
  - DEPRESSION [None]
  - DIZZINESS [None]
  - DYSPHAGIA [None]
  - FEELING ABNORMAL [None]
  - INSOMNIA [None]
  - STRESS [None]
  - VISION BLURRED [None]
